FAERS Safety Report 11583389 (Version 5)
Quarter: 2017Q3

REPORT INFORMATION
  Report Type: Report from Study
  Country: DE (occurrence: DE)
  Receive Date: 20151001
  Receipt Date: 20170729
  Transmission Date: 20171127
  Serious: Yes (Hospitalization)
  Sender: FDA-Public Use
  Company Number: DE-ROCHE-1640623

PATIENT
  Age: 62 Year
  Sex: Female

DRUGS (9)
  1. RITUXIMAB. [Suspect]
     Active Substance: RITUXIMAB
     Indication: RHEUMATOID ARTHRITIS
     Dosage: MOST RECENT DOSE (1000 MG) OF RITUXIMAB PRIOR TO THE EVENT : 28/APR/2015
     Route: 042
     Dates: start: 20150428
  2. RITUXIMAB. [Suspect]
     Active Substance: RITUXIMAB
     Dosage: MOST RECENT DOSE (1000 MG) OF RITUXIMAB PRIOR TO THE EVENT : 28/APR/2015
     Route: 042
     Dates: start: 200911
  3. HYDROXYCHLOROQUINE [Concomitant]
     Active Substance: HYDROXYCHLOROQUINE
     Indication: RHEUMATOID ARTHRITIS
     Dosage: 200-400 MG
     Route: 065
  4. RITUXIMAB. [Suspect]
     Active Substance: RITUXIMAB
     Dosage: MOST RECENT DOSE (1000 MG) OF RITUXIMAB PRIOR TO THE EVENT : 28/APR/2015
     Route: 042
     Dates: start: 200908
  5. RITUXIMAB. [Suspect]
     Active Substance: RITUXIMAB
     Dosage: MOST RECENT DOSE (1000 MG) OF RITUXIMAB PRIOR TO THE EVENT : 28/APR/2015
     Route: 042
     Dates: start: 201211
  6. RITUXIMAB. [Suspect]
     Active Substance: RITUXIMAB
     Dosage: MOST RECENT DOSE (1000 MG) OF RITUXIMAB PRIOR TO THE EVENT : 28/APR/2015
     Route: 042
     Dates: start: 201306
  7. RITUXIMAB. [Suspect]
     Active Substance: RITUXIMAB
     Dosage: MOST RECENT DOSE (1000 MG) OF RITUXIMAB PRIOR TO THE EVENT : 28/APR/2015
     Route: 042
     Dates: start: 201204
  8. RITUXIMAB. [Suspect]
     Active Substance: RITUXIMAB
     Dosage: MOST RECENT DOSE (1000 MG) OF RITUXIMAB PRIOR TO THE EVENT : 28/APR/2015
     Route: 042
     Dates: start: 201006
  9. RITUXIMAB. [Suspect]
     Active Substance: RITUXIMAB
     Dosage: MOST RECENT DOSE (1000 MG) OF RITUXIMAB PRIOR TO THE EVENT : 28/APR/2015
     Route: 042
     Dates: start: 201312

REACTIONS (4)
  - Varices oesophageal [Recovered/Resolved]
  - Subileus [Unknown]
  - Venous aneurysm [Unknown]
  - Abdominal discomfort [Recovered/Resolved]

NARRATIVE: CASE EVENT DATE: 20141130
